FAERS Safety Report 17793716 (Version 2)
Quarter: 2020Q2

REPORT INFORMATION
  Report Type: Report from Study
  Country: US (occurrence: US)
  Receive Date: 20200515
  Receipt Date: 20200622
  Transmission Date: 20200714
  Serious: Yes (Hospitalization)
  Sender: FDA-Public Use
  Company Number: US-PFIZER INC-2020181499

PATIENT
  Age: 62 Year
  Sex: Male
  Weight: 142 kg

DRUGS (3)
  1. BLINDED PF-04518600 [Suspect]
     Active Substance: IVUXOLIMAB
     Dosage: UNK
     Dates: start: 20200108
  2. PLACEBO [Suspect]
     Active Substance: UNSPECIFIED INGREDIENT
     Dosage: UNK
     Dates: start: 20200108
  3. AXITINIB [Suspect]
     Active Substance: AXITINIB
     Dosage: 3 MG, 2X/DAY (BID)
     Dates: start: 20200108, end: 20200501

REACTIONS (2)
  - Acute kidney injury [Not Recovered/Not Resolved]
  - Haematuria [Not Recovered/Not Resolved]

NARRATIVE: CASE EVENT DATE: 20200501
